FAERS Safety Report 6432239-8 (Version None)
Quarter: 2009Q4

REPORT INFORMATION
  Report Type: 
  Country: None (occurrence: None)
  Receive Date: 20091109
  Receipt Date: 20091103
  Transmission Date: 20100525
  Serious: Yes (Hospitalization)
  Sender: FDA-Public Use
  Company Number: GB-ALEXION-A200900869

PATIENT

DRUGS (3)
  1. SOLIRIS [Suspect]
     Indication: PAROXYSMAL NOCTURNAL HAEMOGLOBINURIA
     Dosage: INITIATION PHASE
     Route: 042
     Dates: start: 20040101
  2. SOLIRIS [Suspect]
     Dosage: 900 MG, UNK
     Route: 042
  3. WARFARIN SODIUM [Concomitant]

REACTIONS (2)
  - MENINGOCOCCAL INFECTION [None]
  - VIRAL INFECTION [None]
